FAERS Safety Report 8278668-1 (Version None)
Quarter: 2012Q2

REPORT INFORMATION
  Report Type: 
  Country: None (occurrence: None)
  Receive Date: 20120412
  Receipt Date: 20111213
  Transmission Date: 20120825
  Serious: No
  Sender: FDA-Public Use
  Company Number: US-ASTRAZENECA-2011SE52262

PATIENT
  Age: 74 Year
  Sex: Female

DRUGS (7)
  1. ATENOLOL [Concomitant]
  2. XANAX [Concomitant]
  3. LISINOPRIL AND HYDROCHLOROTHIAZIDE [Suspect]
     Route: 048
  4. LISINOPRIL [Suspect]
     Route: 048
  5. NEXIUM [Suspect]
     Dosage: SOME TIMES TAKES TWO CAPSULES INSTEAD OF ONE CAPSULE
     Route: 048
  6. NEXIUM [Suspect]
     Route: 048
  7. LIPITOR [Concomitant]

REACTIONS (7)
  - RENAL CYST [None]
  - THYROID DISORDER [None]
  - ULCER [None]
  - DEHYDRATION [None]
  - ARTHROPATHY [None]
  - GASTROINTESTINAL DISORDER [None]
  - LIMB DISCOMFORT [None]
